FAERS Safety Report 10166519 (Version 1)
Quarter: 2014Q2

REPORT INFORMATION
  Report Type: Spontaneous
  Country: US (occurrence: None)
  Receive Date: 20140509
  Receipt Date: 20140509
  Transmission Date: 20141212
  Serious: Yes (Hospitalization)
  Sender: FDA-Public Use
  Company Number: None

PATIENT
  Age: 45 Year
  Sex: Female
  Weight: 45.1 kg

DRUGS (1)
  1. ERIBULIN MESYLATE 1.4 MG/M2 EISAI [Suspect]
     Indication: CERVIX CARCINOMA
     Dosage: 1.9 , D1/D8 Q 21 DYS CYCL
     Route: 042
     Dates: start: 20140408, end: 20140409

REACTIONS (7)
  - Asthenia [None]
  - Pain [None]
  - Back pain [None]
  - Anaemia [None]
  - Refusal of treatment by patient [None]
  - Fall [None]
  - Dizziness [None]
